FAERS Safety Report 24040826 (Version 2)
Quarter: 2024Q3

REPORT INFORMATION
  Report Type: Spontaneous
  Country: ES (occurrence: ES)
  Receive Date: 20240702
  Receipt Date: 20240815
  Transmission Date: 20241016
  Serious: Yes (Other)
  Sender: ACORDA
  Company Number: None

PATIENT

DRUGS (6)
  1. INBRIJA [Suspect]
     Active Substance: LEVODOPA
     Indication: Parkinson^s disease
     Dosage: 0.33 UNK, QD
     Route: 048
  2. CARBIDOPA\LEVODOPA [Suspect]
     Active Substance: CARBIDOPA\LEVODOPA
     Indication: Parkinson^s disease
     Dosage: 240 MG/ML + 12 MG/ML
     Route: 058
     Dates: start: 20240515, end: 202405
  3. CARBIDOPA\LEVODOPA [Suspect]
     Active Substance: CARBIDOPA\LEVODOPA
     Dosage: MINIMUM DOSE OF 0.15 ML/H
     Route: 058
     Dates: start: 202405
  4. CARBIDOPA\LEVODOPA [Suspect]
     Active Substance: CARBIDOPA\LEVODOPA
     Dosage: DOSE CHANGED, MAINTAINED 0.17 DAY AND NIGHT
     Route: 058
     Dates: start: 202405
  5. XADAGO [Concomitant]
     Active Substance: SAFINAMIDE MESYLATE
     Indication: Product used for unknown indication
     Dosage: DOSES ADJUSTED
     Route: 065
     Dates: start: 202405, end: 202405
  6. PRAMIPEXOLE [Concomitant]
     Active Substance: PRAMIPEXOLE\PRAMIPEXOLE DIHYDROCHLORIDE
     Indication: Product used for unknown indication
     Dosage: UNK
     Route: 065
     Dates: end: 202405

REACTIONS (10)
  - Dystonia [Recovering/Resolving]
  - Bradykinesia [Unknown]
  - Freezing phenomenon [Unknown]
  - Reduced facial expression [Unknown]
  - Myalgia [Unknown]
  - Gait inability [Recovering/Resolving]
  - Musculoskeletal stiffness [Unknown]
  - Asthenia [Unknown]
  - On and off phenomenon [Not Recovered/Not Resolved]
  - Somnolence [Unknown]

NARRATIVE: CASE EVENT DATE: 20240101
